FAERS Safety Report 6165301-8 (Version None)
Quarter: 2009Q2

REPORT INFORMATION
  Report Type: 
  Country: None (occurrence: None)
  Receive Date: 20090421
  Receipt Date: 20090421
  Transmission Date: 20091009
  Serious: Yes (Hospitalization)
  Sender: FDA-Public Use
  Company Number: None

PATIENT
  Sex: Female
  Weight: 71 kg

DRUGS (1)
  1. GEMCITABINE HCL [Suspect]
     Dosage: 250 MG

REACTIONS (5)
  - ANAEMIA [None]
  - CHEST PAIN [None]
  - GLUCOSE URINE PRESENT [None]
  - URINARY TRACT INFECTION ENTEROCOCCAL [None]
  - URINE KETONE BODY PRESENT [None]
